FAERS Safety Report 8547012-4 (Version None)
Quarter: 2012Q3

REPORT INFORMATION
  Report Type: 
  Country: None (occurrence: None)
  Receive Date: 20120727
  Receipt Date: 20120308
  Transmission Date: 20120928
  Serious: No
  Sender: FDA-Public Use
  Company Number: US-ASTRAZENECA-2012SE16231

PATIENT
  Age: 58 Year
  Sex: Male
  Weight: 75.7 kg

DRUGS (6)
  1. SEROQUEL [Suspect]
     Indication: POST-TRAUMATIC STRESS DISORDER
     Route: 048
     Dates: start: 20111201
  2. TRAMADOL HYDROCHLORIDE [Concomitant]
     Indication: PAIN
  3. VITAMIN TAB [Concomitant]
     Indication: VITAMIN SUPPLEMENTATION
  4. ZOLOFT [Concomitant]
  5. LACTULOSE [Concomitant]
     Indication: GASTROINTESTINAL DISORDER
  6. SEROQUEL [Suspect]
     Indication: NIGHTMARE
     Route: 048
     Dates: start: 20111201

REACTIONS (5)
  - NIGHTMARE [None]
  - INSOMNIA [None]
  - DRUG DOSE OMISSION [None]
  - NIGHT SWEATS [None]
  - OFF LABEL USE [None]
